FAERS Safety Report 6770413-1 (Version None)
Quarter: 2010Q2

REPORT INFORMATION
  Report Type: 
  Country: None (occurrence: None)
  Receive Date: 20100615
  Receipt Date: 20100604
  Transmission Date: 20101027
  Serious: Yes (Other)
  Sender: FDA-Public Use
  Company Number: JP-PFIZER INC-2010070504

PATIENT
  Age: 72 Year
  Sex: Female

DRUGS (2)
  1. ZITHROMAX [Suspect]
     Indication: DENTAL CARE
     Dosage: 500 MG, 1X/DAY
     Route: 048
  2. ZITHROMAX [Suspect]
     Dosage: 600 MG, 1X/DAY
     Route: 048

REACTIONS (6)
  - ANGLE CLOSURE GLAUCOMA [None]
  - EYELID OEDEMA [None]
  - INTRAOCULAR PRESSURE INCREASED [None]
  - MYOGLOBIN BLOOD INCREASED [None]
  - SARCOIDOSIS [None]
  - TOXIC EPIDERMAL NECROLYSIS [None]
